FAERS Safety Report 4554493-X (Version None)
Quarter: 2005Q1

REPORT INFORMATION
  Report Type: 
  Country: None (occurrence: None)
  Receive Date: 20050118
  Receipt Date: 20041213
  Transmission Date: 20050727
  Serious: Yes (Hospitalization)
  Sender: FDA-Public Use
  Company Number: ES-ROCHE-388988

PATIENT
  Age: 42 Year
  Sex: Male

DRUGS (12)
  1. DACLIZUMAB [Suspect]
     Route: 042
     Dates: start: 20041204, end: 20041204
  2. MYCOPHENOLATE MOFETIL [Suspect]
     Route: 048
     Dates: start: 20041203
  3. MYCOPHENOLATE MOFETIL [Suspect]
     Dosage: REDUCED DUE TO LEUKOPENIA.
     Route: 048
     Dates: start: 20041224
  4. SIROLIMUS [Suspect]
     Route: 048
     Dates: start: 20041204
  5. SIROLIMUS [Suspect]
     Dosage: DECREASED DUE TO FEVER.
     Route: 048
     Dates: start: 20041216
  6. PREDNISONE [Concomitant]
     Dosage: ONGOING AT 7.5 MG DAILY.
     Route: 048
  7. DOBUTAMINE HCL [Concomitant]
     Dates: start: 20041204
  8. DOPAMINE [Concomitant]
     Dosage: UNIT = ML/H
     Dates: start: 20041205
  9. OMEPRAZOLE [Concomitant]
     Dosage: UNIT = ML/H
     Dates: start: 20041204
  10. SEGURIL [Concomitant]
     Dates: start: 20041204
  11. ALEUDRINA [Concomitant]
     Dosage: UNIT = ML/H
     Dates: start: 20041204
  12. FLUCONAZOLE [Concomitant]

REACTIONS (4)
  - BACTERAEMIA [None]
  - COMPLICATIONS OF TRANSPLANT SURGERY [None]
  - MEDIASTINITIS [None]
  - PNEUMONIA [None]
